FAERS Safety Report 9834296 (Version 1)
Quarter: 2014Q1

REPORT INFORMATION
  Report Type: Spontaneous
  Country: GB (occurrence: GB)
  Receive Date: 20140122
  Receipt Date: 20140122
  Transmission Date: 20141002
  Serious: Yes (Other)
  Sender: FDA-Public Use
  Company Number: GB-MYLANLABS-2014S1000570

PATIENT
  Age: 46 Year
  Sex: Female
  Weight: 72 kg

DRUGS (3)
  1. LOSARTAN [Suspect]
     Indication: HYPERTENSION
     Route: 048
     Dates: start: 20130530, end: 20130621
  2. AMLODIPINE [Concomitant]
     Indication: ADVERSE DRUG REACTION
  3. RAMIPRIL [Concomitant]
     Indication: COUGH

REACTIONS (3)
  - Depression [Recovered/Resolved with Sequelae]
  - Feeling of despair [Unknown]
  - Suicidal ideation [Unknown]
